FAERS Safety Report 20795265 (Version 1)
Quarter: 2022Q2

REPORT INFORMATION
  Report Type: Spontaneous
  Country: US (occurrence: None)
  Receive Date: 20220505
  Receipt Date: 20220505
  Transmission Date: 20220721
  Serious: Yes (Other)
  Sender: FDA-Public Use
  Company Number: None

PATIENT
  Sex: Female
  Weight: 54 kg

DRUGS (9)
  1. CLENPIQ [Suspect]
     Active Substance: ANHYDROUS CITRIC ACID\MAGNESIUM OXIDE\SODIUM PICOSULFATE
     Indication: Colonoscopy
     Route: 048
     Dates: start: 20211014, end: 20211014
  2. GARLIC [Concomitant]
     Active Substance: GARLIC
  3. VITAMIN D3 [Concomitant]
     Active Substance: CHOLECALCIFEROL
  4. VITAMIN B12 [Concomitant]
     Active Substance: CYANOCOBALAMIN
  5. BIOTIN [Concomitant]
     Active Substance: BIOTIN
  6. OMEGA 3 [Concomitant]
     Active Substance: CAPSAICIN
  7. POTASSIUM [Concomitant]
     Active Substance: POTASSIUM
  8. VITAMIN K [Concomitant]
     Active Substance: PHYTONADIONE
  9. ZINC [Concomitant]
     Active Substance: ZINC

REACTIONS (5)
  - Rash [None]
  - Burning sensation [None]
  - Pruritus [None]
  - Diarrhoea [None]
  - Vulvovaginal burning sensation [None]

NARRATIVE: CASE EVENT DATE: 20211016
